FAERS Safety Report 25356907 (Version 1)
Quarter: 2025Q2

REPORT INFORMATION
  Report Type: Spontaneous
  Country: JP (occurrence: JP)
  Receive Date: 20250526
  Receipt Date: 20250526
  Transmission Date: 20250717
  Serious: Yes (Hospitalization, Other)
  Sender: GLAXOSMITHKLINE
  Company Number: JP-GSKJP-JP2025JPN062306AA

PATIENT

DRUGS (8)
  1. DAPRODUSTAT [Suspect]
     Active Substance: DAPRODUSTAT
     Indication: Nephrogenic anaemia
     Dosage: 2 MG, 1D
     Route: 048
  2. SODIUM FERROUS CITRATE [Suspect]
     Active Substance: SODIUM FERROUS CITRATE
     Indication: Iron deficiency
     Route: 048
     Dates: start: 20250321
  3. VONOPRAZAN FUMARATE [Concomitant]
     Active Substance: VONOPRAZAN FUMARATE
     Route: 048
  4. KALLIDINOGENASE [Concomitant]
     Active Substance: KALLIDINOGENASE
     Route: 048
  5. URSO [Concomitant]
     Active Substance: URSODIOL
     Route: 048
  6. DIETARY SUPPLEMENT\UBIDECARENONE [Concomitant]
     Active Substance: DIETARY SUPPLEMENT\UBIDECARENONE
  7. ENTRESTO [Concomitant]
     Active Substance: SACUBITRIL\VALSARTAN
     Route: 048
     Dates: start: 20250307
  8. NITROGLYCERIN [Concomitant]
     Active Substance: NITROGLYCERIN
     Route: 050
     Dates: start: 20250307, end: 20250408

REACTIONS (9)
  - Respiratory failure [Unknown]
  - Pneumonia [Unknown]
  - Aortic valve stenosis [Unknown]
  - Pulmonary hypertension [Unknown]
  - Cardiac failure [Unknown]
  - Pulmonary embolism [Unknown]
  - Haemoglobin increased [Recovering/Resolving]
  - Hypophagia [Unknown]
  - Dyspnoea [Unknown]

NARRATIVE: CASE EVENT DATE: 20250307
